FAERS Safety Report 24640915 (Version 1)
Quarter: 2024Q4

REPORT INFORMATION
  Report Type: Report from Study
  Country: ES (occurrence: ES)
  Receive Date: 20241120
  Receipt Date: 20241120
  Transmission Date: 20250114
  Serious: Yes (Hospitalization)
  Sender: Y-MABS THERAPEUTICS
  Company Number: ES-Y-MABS THERAPEUTICS, INC.-COM2023-ES-001282

PATIENT

DRUGS (10)
  1. NAXITAMAB [Suspect]
     Active Substance: NAXITAMAB
     Indication: Neuroblastoma
     Dosage: CYCLE 1, DOSE 1
     Route: 042
  2. NAXITAMAB [Suspect]
     Active Substance: NAXITAMAB
     Dosage: CYCLE 4, DOSE 1 (HITS)
     Route: 042
     Dates: start: 20230531, end: 20230531
  3. NAXITAMAB [Suspect]
     Active Substance: NAXITAMAB
     Dosage: CYCLE 4, DOSE 3 (HITS)
     Route: 042
     Dates: start: 20230607, end: 20230607
  4. NAXITAMAB [Suspect]
     Active Substance: NAXITAMAB
     Dosage: CYCLE 4, DOSE 4 (HITS)
     Route: 042
     Dates: start: 20230609, end: 20230609
  5. GRANULOCYTE-MACROPHAGE COLONY-STIMULATING FACTOR [Suspect]
     Active Substance: GRANULOCYTE-MACROPHAGE COLONY-STIMULATING FACTOR
     Indication: Neuroblastoma
     Dosage: CYCLE 1, DOSE 1
     Route: 058
  6. GRANULOCYTE-MACROPHAGE COLONY-STIMULATING FACTOR [Suspect]
     Active Substance: GRANULOCYTE-MACROPHAGE COLONY-STIMULATING FACTOR
     Dosage: CYCLE 4, DOSE 1
     Route: 058
     Dates: start: 20230605, end: 20230605
  7. GRANULOCYTE-MACROPHAGE COLONY-STIMULATING FACTOR [Suspect]
     Active Substance: GRANULOCYTE-MACROPHAGE COLONY-STIMULATING FACTOR
     Dosage: CYCLE 4, DOSE 3
     Route: 058
     Dates: start: 20230607, end: 20230607
  8. GRANULOCYTE-MACROPHAGE COLONY-STIMULATING FACTOR [Suspect]
     Active Substance: GRANULOCYTE-MACROPHAGE COLONY-STIMULATING FACTOR
     Dosage: CYCLE 4, DOSE 5
     Route: 058
     Dates: start: 20230609, end: 20230609
  9. IRINOTECAN [Concomitant]
     Active Substance: IRINOTECAN
     Indication: Neuroblastoma
     Dosage: UNK
     Route: 042
     Dates: start: 20230529, end: 20230602
  10. TEMOZOLOMIDE [Concomitant]
     Active Substance: TEMOZOLOMIDE
     Indication: Neuroblastoma
     Dosage: UNK
     Route: 048
     Dates: start: 20230529, end: 20230602

REACTIONS (1)
  - Metabolic acidosis [Recovered/Resolved]

NARRATIVE: CASE EVENT DATE: 20230607
